FAERS Safety Report 16969512 (Version 1)
Quarter: 2019Q4

REPORT INFORMATION
  Report Type: Spontaneous
  Country: CO (occurrence: CO)
  Receive Date: 20191029
  Receipt Date: 20191029
  Transmission Date: 20200122
  Serious: Yes (Other)
  Sender: FDA-Public Use
  Company Number: CO-VIIV HEALTHCARE LIMITED-CO2019AMR192709

PATIENT

DRUGS (1)
  1. TIVICAY [Suspect]
     Active Substance: DOLUTEGRAVIR SODIUM
     Indication: HIV INFECTION
     Dosage: 50 MG, UNK

REACTIONS (1)
  - Anxiety [Unknown]
